FAERS Safety Report 9494102 (Version 1)
Quarter: 2013Q3

REPORT INFORMATION
  Report Type: Spontaneous
  Country: GB (occurrence: None)
  Receive Date: 20130827
  Receipt Date: 20130827
  Transmission Date: 20140515
  Serious: Yes (Hospitalization)
  Sender: FDA-Public Use
  Company Number: 2013AP007506

PATIENT
  Sex: Female

DRUGS (3)
  1. ALENDRONIC ACID (ALENDRONIC ACID) [Suspect]
     Indication: OSTEOPOROSIS
     Route: 048
     Dates: start: 2011, end: 2011
  2. IBANDRONATE SODIUM [Suspect]
     Indication: OSTEOPOROSIS
     Route: 042
     Dates: start: 2011
  3. NORTRIPTYLINE (NORTRIPTYLINE) [Concomitant]

REACTIONS (11)
  - Back pain [None]
  - Diarrhoea [None]
  - Dysaesthesia [None]
  - Malaise [None]
  - Hypersensitivity [None]
  - Palpitations [None]
  - Rash [None]
  - Herpes zoster [None]
  - Dysphagia [None]
  - Paraesthesia [None]
  - Feeling abnormal [None]
